FAERS Safety Report 13128475 (Version 5)
Quarter: 2018Q1

REPORT INFORMATION
  Report Type: Spontaneous
  Country: US (occurrence: US)
  Receive Date: 20170118
  Receipt Date: 20180123
  Transmission Date: 20180508
  Serious: No
  Sender: FDA-Public Use
  Company Number: US-PFIZER INC-2017022002

PATIENT
  Age: 45 Year
  Sex: Male
  Weight: 136 kg

DRUGS (14)
  1. METHYLPHENIDATE HYDROCHLORIDE. [Concomitant]
     Active Substance: METHYLPHENIDATE HYDROCHLORIDE
     Indication: ATTENTION DEFICIT/HYPERACTIVITY DISORDER
     Dosage: 20 MG, 1X/DAY (DAILY, IN MORNING)
     Route: 048
     Dates: start: 1997
  2. NAPROXEN SODIUM. [Concomitant]
     Active Substance: NAPROXEN SODIUM
     Indication: INFLAMMATION
     Dosage: 500 MG, 3X/DAY (EVERY FOUR HOURS)
  3. KEFLEX [Concomitant]
     Active Substance: CEPHALEXIN
     Indication: EAR INFECTION
     Dosage: 500 MG, TWICE DAILY
     Route: 048
     Dates: start: 201611, end: 201612
  4. LISINOPRIL. [Concomitant]
     Active Substance: LISINOPRIL
     Indication: HYPERTENSION
     Dosage: 5 MG, 1X/DAY (DAILY AT NIGHT)
     Route: 048
     Dates: start: 201511
  5. CARVEDILOL. [Concomitant]
     Active Substance: CARVEDILOL
     Indication: HYPERTENSION
     Dosage: 3.125 MG, TWICE A DAY (ONCE IN THE MORNING ONCE AT NIGHT)
     Route: 048
     Dates: start: 201511
  6. OMEPRAZOLE. [Concomitant]
     Active Substance: OMEPRAZOLE
     Indication: GASTROOESOPHAGEAL REFLUX DISEASE
     Dosage: 40 MG (ONE CAPSULE PER DAY IN THE MORNING)
     Route: 048
     Dates: start: 2010
  7. ASPIRIN. [Concomitant]
     Active Substance: ASPIRIN
     Indication: MYOCARDIAL INFARCTION
     Dosage: 81 MG, DAILY
     Route: 048
     Dates: start: 20151129
  8. NAPROXEN SODIUM. [Concomitant]
     Active Substance: NAPROXEN SODIUM
     Indication: PAIN
     Dosage: 500 MG, 2X/DAY [EVERY 12 HOURS]
     Route: 048
     Dates: start: 2013
  9. MORPHINE SULFATE. [Concomitant]
     Active Substance: MORPHINE SULFATE
     Indication: PAIN
     Dosage: 15 MG, 2X/DAY (ONE TABLET EVERY 12 HOURS)
     Route: 048
     Dates: start: 201607
  10. LYRICA [Suspect]
     Active Substance: PREGABALIN
     Indication: NERVE INJURY
     Dosage: 75 MG, 2X/DAY
     Route: 048
     Dates: start: 201611
  11. LYRICA [Suspect]
     Active Substance: PREGABALIN
     Indication: NEURALGIA
     Dosage: 75 MG, 2X/DAY (75MG ONE CAPSULE IN THE MORNING AND ONE CAPSULE AT NIGHT)
     Route: 048
     Dates: start: 201612
  12. LYRICA [Suspect]
     Active Substance: PREGABALIN
     Indication: PAIN
     Dosage: 150 MG, 2X/DAY [TWO 75 MG CAPSULES BY MOUTH IN THE MORNING AND TWO 75 MG CAPSULES AT NIGHT]
     Route: 048
  13. SUDAFED [Concomitant]
     Active Substance: PSEUDOEPHEDRINE HYDROCHLORIDE
     Indication: EAR INFECTION
     Dosage: 60 MG, (ONE TABLET EVERY FOUR TO SIX HOURS)
     Route: 048
     Dates: start: 201611, end: 201701
  14. RANITIDINE HCL [Concomitant]
     Active Substance: RANITIDINE HYDROCHLORIDE
     Indication: GASTROOESOPHAGEAL REFLUX DISEASE
     Dosage: 300 MG, 1X/DAY (ONE TABLET IN THE MORNING)
     Route: 048
     Dates: start: 2010

REACTIONS (6)
  - Balance disorder [Recovered/Resolved]
  - Hyperphagia [Not Recovered/Not Resolved]
  - Lack of satiety [Not Recovered/Not Resolved]
  - Weight increased [Not Recovered/Not Resolved]
  - Drug ineffective [Not Recovered/Not Resolved]
  - Dizziness [Recovered/Resolved]

NARRATIVE: CASE EVENT DATE: 2016
